FAERS Safety Report 10789434 (Version 1)
Quarter: 2015Q1

REPORT INFORMATION
  Report Type: Spontaneous
  Country: US (occurrence: US)
  Receive Date: 20150212
  Receipt Date: 20150212
  Transmission Date: 20150721
  Serious: No
  Sender: FDA-Public Use
  Company Number: US-GLAXOSMITHKLINE-A1085505A

PATIENT

DRUGS (3)
  1. CYMBALTA [Concomitant]
     Active Substance: DULOXETINE HYDROCHLORIDE
  2. VENTOLIN [Suspect]
     Active Substance: ALBUTEROL SULFATE
     Indication: ASTHMA
     Route: 055
  3. VENTOLIN [Suspect]
     Active Substance: ALBUTEROL SULFATE
     Indication: MULTIPLE ALLERGIES

REACTIONS (3)
  - Product quality issue [Unknown]
  - Dyspnoea [Unknown]
  - Panic attack [Recovered/Resolved]

NARRATIVE: CASE EVENT DATE: 20140715
